FAERS Safety Report 9391557 (Version 4)
Quarter: 2013Q3

REPORT INFORMATION
  Report Type: Spontaneous
  Country: DE (occurrence: DE)
  Receive Date: 20130709
  Receipt Date: 20130812
  Transmission Date: 20140515
  Serious: Yes (Death, Other)
  Sender: FDA-Public Use
  Company Number: DE-JNJFOC-20130702763

PATIENT
  Age: 57 Year
  Sex: Male
  Weight: 75 kg

DRUGS (4)
  1. STELARA [Suspect]
     Indication: PSORIASIS
     Route: 058
     Dates: start: 20130531
  2. METHOTREXATE [Concomitant]
     Indication: PSORIASIS
     Route: 065
  3. RIFAMPICIN [Concomitant]
     Indication: LATENT TUBERCULOSIS
     Route: 065
  4. PYRAZINAMID [Concomitant]
     Indication: LATENT TUBERCULOSIS
     Route: 065

REACTIONS (7)
  - Cardiac arrest [Fatal]
  - Multi-organ failure [Fatal]
  - Sepsis [Unknown]
  - Acute abdomen [Unknown]
  - Colitis [Unknown]
  - Enteritis [Unknown]
  - Gastrointestinal haemorrhage [Unknown]
